FAERS Safety Report 5981170-0 (Version None)
Quarter: 2008Q4

REPORT INFORMATION
  Report Type: 
  Country: None (occurrence: None)
  Receive Date: 20081205
  Receipt Date: 20081204
  Transmission Date: 20090506
  Serious: Yes (Death)
  Sender: FDA-Public Use
  Company Number: A0759366A

PATIENT
  Age: 48 Year
  Sex: Male

DRUGS (3)
  1. WELLBUTRIN XL [Suspect]
     Indication: DEPRESSION
     Dosage: 450MGD PER DAY
     Route: 048
  2. CELEXA [Suspect]
     Indication: DRUG USE FOR UNKNOWN INDICATION
     Dosage: 40MGD PER DAY
     Route: 048
  3. ZOPICLONE [Concomitant]

REACTIONS (3)
  - COMPLETED SUICIDE [None]
  - MULTIPLE DRUG OVERDOSE INTENTIONAL [None]
  - SUICIDAL IDEATION [None]
